FAERS Safety Report 5578052-5 (Version None)
Quarter: 2007Q4

REPORT INFORMATION
  Report Type: 
  Country: None (occurrence: None)
  Receive Date: 20071227
  Receipt Date: 20071210
  Transmission Date: 20080405
  Serious: Yes (Disabling)
  Sender: FDA-Public Use
  Company Number: 2007AP001464

PATIENT
  Sex: Female

DRUGS (3)
  1. AMLODIPINE BESYLATE [Suspect]
     Indication: BLOOD PRESSURE
     Dosage: 1 DF; PO; QD; PO
     Route: 048
     Dates: start: 20071020, end: 20071025
  2. OMEPRAZOLE [Concomitant]
  3. DOSULEPIN HYDROCHLORIDE (DOSULEPIN HYDROCHLORIDE) [Concomitant]

REACTIONS (5)
  - BALANCE DISORDER [None]
  - CHEST PAIN [None]
  - PAIN IN EXTREMITY [None]
  - TREMOR [None]
  - VISUAL ACUITY REDUCED [None]
